FAERS Safety Report 23586394 (Version 2)
Quarter: 2024Q1

REPORT INFORMATION
  Report Type: Spontaneous
  Country: US (occurrence: US)
  Receive Date: 20240301
  Receipt Date: 20240321
  Transmission Date: 20240410
  Serious: No
  Sender: FDA-Public Use
  Company Number: US-PFIZER INC-202400048374

PATIENT
  Age: 7 Year
  Sex: Male

DRUGS (2)
  1. GENOTROPIN [Suspect]
     Active Substance: SOMATROPIN
     Indication: Growth hormone deficiency
     Dosage: 1 MG ALTERNATE WITH 1.2MG /WEEK
  2. NGENLA [Concomitant]
     Active Substance: SOMATROGON-GHLA
     Dosage: 1 MG ALTERNATE WITH 1.2MG /WEEK FOR NGENLA

REACTIONS (1)
  - Headache [Unknown]
